FAERS Safety Report 24075605 (Version 2)
Quarter: 2024Q3

REPORT INFORMATION
  Report Type: Spontaneous
  Country: ES (occurrence: ES)
  Receive Date: 20240710
  Receipt Date: 20240722
  Transmission Date: 20241017
  Serious: Yes (Hospitalization)
  Sender: MYLAN
  Company Number: None

PATIENT
  Age: 58 Year
  Sex: Female

DRUGS (6)
  1. LYRICA [Suspect]
     Active Substance: PREGABALIN
     Indication: Neuralgia
     Dosage: 125 MILLIGRAM, QD, 56 CAPSULES
     Route: 048
     Dates: start: 20230904, end: 20240606
  2. DISULFIRAM [Suspect]
     Active Substance: DISULFIRAM
     Indication: Product used for unknown indication
     Dosage: 250 MILLIGRAM, QD, 40 TABLETS
     Route: 048
     Dates: start: 20230321, end: 20240530
  3. CALCIFEDIOL [Concomitant]
     Active Substance: CALCIFEDIOL
     Dosage: 0.26 MILLIGRAM, BIMONTHLY, 0.266 MG SOFT CAPSULES, 10 CAPSULES (PVC/PVDC-ALUMINUM BLISTER)
     Route: 048
     Dates: start: 20230208
  4. Deprax [Concomitant]
     Dosage: 100 MILLIGRAM, QD, GENERIC PHARMACEUTICAL EQUIVALENT TABLETS, 60 TABLETS
     Route: 048
     Dates: start: 20230322
  5. OMEPRAZOL TARBIS [Concomitant]
     Dosage: 20 MILLIGRAM, QD, PHARMACEUTICAL EQUIVALENT CAPSULES, 56 CAPSULES
     Route: 048
     Dates: start: 20200707
  6. CYANOCOBALAMIN [Concomitant]
     Active Substance: CYANOCOBALAMIN
     Dosage: 1000 MICROGRAM, MONTHLY, 5 AMPOULES OF 2 ML
     Route: 030
     Dates: start: 20230208

REACTIONS (2)
  - Retinopathy [Not Recovered/Not Resolved]
  - Polyneuropathy [Not Recovered/Not Resolved]

NARRATIVE: CASE EVENT DATE: 20240318
